FAERS Safety Report 12056724 (Version 2)
Quarter: 2016Q1

REPORT INFORMATION
  Report Type: Report from Study
  Country: US (occurrence: US)
  Receive Date: 20160209
  Receipt Date: 20160308
  Transmission Date: 20160526
  Serious: Yes (Hospitalization, Other)
  Sender: FDA-Public Use
  Company Number: US-GILEAD-2016-0196963

PATIENT
  Age: 10 Year
  Sex: Female

DRUGS (4)
  1. PULMOZYME [Concomitant]
     Active Substance: DORNASE ALFA
  2. REVATIO [Concomitant]
     Active Substance: SILDENAFIL CITRATE
  3. AZTREONAM LYSINE [Suspect]
     Active Substance: AZTREONAM LYSINE
     Indication: CYSTIC FIBROSIS
     Dosage: 75 MG, TID
     Route: 055
     Dates: start: 20151224
  4. BETHKIS [Concomitant]
     Active Substance: TOBRAMYCIN

REACTIONS (2)
  - Malaise [Not Recovered/Not Resolved]
  - Pulmonary arterial hypertension [Not Recovered/Not Resolved]
